FAERS Safety Report 19739123 (Version 2)
Quarter: 2022Q2

REPORT INFORMATION
  Report Type: Spontaneous
  Country: ES (occurrence: ES)
  Receive Date: 20210824
  Receipt Date: 20220414
  Transmission Date: 20220721
  Serious: Yes (Other)
  Sender: FDA-Public Use
  Company Number: None

PATIENT
  Age: 32 Year
  Sex: Female
  Weight: 54 kg

DRUGS (15)
  1. COMIRNATY [Interacting]
     Active Substance: TOZINAMERAN
     Indication: COVID-19 immunisation
     Dosage: DOSE 1, SINGLE
     Dates: start: 20210726, end: 20210726
  2. PRISTIQ EXTENDED-RELEASE [Interacting]
     Active Substance: DESVENLAFAXINE SUCCINATE
     Indication: Anxiety
     Dosage: 100 MG, 1X/DAY, CHRONIC
     Dates: start: 20210412
  3. RABEPRAZOLE SODIUM [Interacting]
     Active Substance: RABEPRAZOLE SODIUM
     Indication: Prophylaxis
     Dosage: 20 MG, 1X/DAY
     Dates: start: 20201223
  4. RABEPRAZOLE SODIUM [Interacting]
     Active Substance: RABEPRAZOLE SODIUM
     Indication: Gastrooesophageal reflux disease
  5. DIENOGEST [Interacting]
     Active Substance: DIENOGEST
     Indication: Endometriosis
     Dosage: 2 MG, 1X/DAY
     Dates: start: 20210621
  6. DIENOGEST [Interacting]
     Active Substance: DIENOGEST
     Indication: Adenomyosis
  7. GLUTAMINE [Interacting]
     Active Substance: GLUTAMINE
     Dosage: 3 MG, 1X/DAY
     Dates: start: 20201116
  8. TRAMADOL HYDROCHLORIDE [Interacting]
     Active Substance: TRAMADOL HYDROCHLORIDE
     Indication: Pain
     Dosage: 100 MG, 3X/DAY, CHRONIC
     Dates: start: 20201120
  9. TRAMADOL HYDROCHLORIDE [Interacting]
     Active Substance: TRAMADOL HYDROCHLORIDE
     Indication: Endometriosis
  10. FISH OIL [Interacting]
     Active Substance: FISH OIL
     Dosage: 1X/DAY
     Dates: start: 20201228
  11. VITAMIN D3 [Interacting]
     Active Substance: CHOLECALCIFEROL
     Dosage: 2 CAPSULES, 1X/DAY
     Dates: start: 20201221
  12. GABAPENTIN [Interacting]
     Active Substance: GABAPENTIN
     Indication: Neuralgia
     Dosage: 1200 MG, 3X/DAY
     Dates: start: 20201215
  13. MELATONIN [Interacting]
     Active Substance: MELATONIN
     Dosage: 1 TABLET, 1X/DAY
     Dates: start: 20210208
  14. DUPHALAC [Interacting]
     Active Substance: LACTULOSE
     Indication: Constipation
     Dosage: 1 SACHET, 1X/DAY
     Dates: start: 20201222
  15. LORAZEPAM [Interacting]
     Active Substance: LORAZEPAM
     Indication: Insomnia
     Dosage: 2 MG, 1X/DAY, CHRONIC
     Dates: start: 20201113

REACTIONS (16)
  - Drug interaction [Recovering/Resolving]
  - Back pain [Recovering/Resolving]
  - Muscle spasms [Recovering/Resolving]
  - Fatigue [Recovering/Resolving]
  - Arthralgia [Recovering/Resolving]
  - Illogical thinking [Recovering/Resolving]
  - Adnexa uteri pain [Recovering/Resolving]
  - Headache [Recovering/Resolving]
  - Body temperature increased [Recovering/Resolving]
  - Nausea [Recovering/Resolving]
  - Uterine pain [Recovering/Resolving]
  - Myalgia [Recovering/Resolving]
  - Bone pain [Recovering/Resolving]
  - Movement disorder [Recovering/Resolving]
  - Speech disorder [Recovering/Resolving]
  - Off label use [Unknown]

NARRATIVE: CASE EVENT DATE: 20210412
